FAERS Safety Report 7119244-3 (Version None)
Quarter: 2010Q4

REPORT INFORMATION
  Report Type: 
  Country: None (occurrence: None)
  Receive Date: 20101123
  Receipt Date: 20101113
  Transmission Date: 20110411
  Serious: Yes (Other)
  Sender: FDA-Public Use
  Company Number: US-PFIZER INC-2010147251

PATIENT
  Sex: Female
  Weight: 65.76 kg

DRUGS (1)
  1. LYRICA [Suspect]
     Indication: FIBROMYALGIA
     Dosage: UNK, 2X/DAY
     Route: 048
     Dates: start: 20100901, end: 20100901

REACTIONS (5)
  - DISTURBANCE IN ATTENTION [None]
  - HEADACHE [None]
  - MEMORY IMPAIRMENT [None]
  - PAIN [None]
  - SKIN DISORDER [None]
